FAERS Safety Report 10879348 (Version 1)
Quarter: 2015Q1

REPORT INFORMATION
  Report Type: Spontaneous
  Country: US (occurrence: US)
  Receive Date: 20150302
  Receipt Date: 20150302
  Transmission Date: 20150721
  Serious: Yes (Hospitalization, Other)
  Sender: FDA-Public Use
  Company Number: US-SA-2015SA023446

PATIENT
  Sex: Male
  Weight: 97.5 kg

DRUGS (14)
  1. LACTULOSE. [Concomitant]
     Active Substance: LACTULOSE
     Dates: start: 20131017
  2. CLEOCIN [Concomitant]
     Active Substance: CLINDAMYCIN PHOSPHATE
     Dates: start: 20131202
  3. ACETAMINOPHEN. [Concomitant]
     Active Substance: ACETAMINOPHEN
     Dates: start: 20140203, end: 20140203
  4. CLINDAMYCIN [Concomitant]
     Active Substance: CLINDAMYCIN\CLINDAMYCIN PHOSPHATE
  5. ONDANSETRON [Concomitant]
     Active Substance: ONDANSETRON
  6. HYDROCORTISONE. [Concomitant]
     Active Substance: HYDROCORTISONE
  7. TRAMADOL [Concomitant]
     Active Substance: TRAMADOL
     Dates: start: 20140113, end: 20140210
  8. FERROUS SULFATE [Concomitant]
     Active Substance: FERROUS SULFATE\FERROUS SULFATE, DRIED
     Dates: start: 20110110, end: 20140210
  9. MAGNESIUM OXIDE. [Concomitant]
     Active Substance: MAGNESIUM OXIDE
     Dates: start: 20131202, end: 20131210
  10. ALPRAZOLAM. [Concomitant]
     Active Substance: ALPRAZOLAM
  11. CETUXIMAB [Concomitant]
     Active Substance: CETUXIMAB
     Dates: start: 20130411, end: 20140302
  12. OXYCODONE [Concomitant]
     Active Substance: OXYCODONE
     Indication: PAIN
     Dates: start: 20130717
  13. COLACE [Concomitant]
     Active Substance: DOCUSATE SODIUM
     Dates: start: 20131017
  14. LOVENOX [Suspect]
     Active Substance: ENOXAPARIN SODIUM
     Route: 065

REACTIONS (7)
  - Ascites [Not Recovered/Not Resolved]
  - Hyponatraemia [Not Recovered/Not Resolved]
  - Gastrointestinal haemorrhage [Not Recovered/Not Resolved]
  - Weight decreased [Not Recovered/Not Resolved]
  - Malaise [Not Recovered/Not Resolved]
  - Dyspnoea [Not Recovered/Not Resolved]
  - Fatigue [Not Recovered/Not Resolved]

NARRATIVE: CASE EVENT DATE: 20140203
